FAERS Safety Report 8620604-X (Version None)
Quarter: 2012Q3

REPORT INFORMATION
  Report Type: 
  Country: None (occurrence: None)
  Receive Date: 20120824
  Receipt Date: 20120817
  Transmission Date: 20120928
  Serious: Yes (Other)
  Sender: FDA-Public Use
  Company Number: JP-BAXTER-2012BAX014812

PATIENT
  Age: 55 Year
  Sex: Female

DRUGS (2)
  1. EXTRANEAL [Suspect]
     Indication: GLOMERULONEPHRITIS CHRONIC
     Route: 033
  2. DIANEAL 137 W/ DEXTROSE 2.5% IN PLASTIC CONTAINER [Suspect]
     Indication: GLOMERULONEPHRITIS CHRONIC
     Route: 033

REACTIONS (4)
  - HYPERKALAEMIA [None]
  - RESPIRATORY FAILURE [None]
  - HYPERTENSION [None]
  - CARDIAC FAILURE [None]
